FAERS Safety Report 21425703 (Version 1)
Quarter: 2022Q4

REPORT INFORMATION
  Report Type: Report from Study
  Country: US (occurrence: US)
  Receive Date: 20221008
  Receipt Date: 20221008
  Transmission Date: 20230113
  Serious: No
  Sender: FDA-Public Use
  Company Number: US-ABBVIE-4138940

PATIENT
  Age: 58 Year
  Sex: Female

DRUGS (1)
  1. SKYRIZI [Suspect]
     Active Substance: RISANKIZUMAB-RZAA
     Indication: Palmoplantar pustulosis
     Dosage: WEEK 0
     Route: 058
     Dates: start: 20220925

REACTIONS (5)
  - Product use in unapproved indication [Unknown]
  - Rash [Unknown]
  - Palmoplantar pustulosis [Unknown]
  - Dermatitis [Unknown]
  - Acne [Unknown]

NARRATIVE: CASE EVENT DATE: 20220901
